FAERS Safety Report 17472708 (Version 1)
Quarter: 2020Q1

REPORT INFORMATION
  Report Type: Spontaneous
  Country: US (occurrence: US)
  Receive Date: 20200227
  Receipt Date: 20200227
  Transmission Date: 20200409
  Serious: Yes (Death)
  Sender: FDA-Public Use
  Company Number: None

PATIENT
  Age: 70 Year
  Sex: Male
  Weight: 70 kg

DRUGS (4)
  1. ASPIRIN. [Concomitant]
     Active Substance: ASPIRIN
  2. IBUPROFEN. [Concomitant]
     Active Substance: IBUPROFEN
  3. CLOPIDOGREL [Concomitant]
     Active Substance: CLOPIDOGREL BISULFATE
  4. APIXABAN [Suspect]
     Active Substance: APIXABAN
     Indication: DEEP VEIN THROMBOSIS
     Route: 048
     Dates: start: 20200219

REACTIONS (10)
  - Pain in extremity [None]
  - Gangrene [None]
  - Dyspnoea [None]
  - Cardiac arrest [None]
  - Vascular pseudoaneurysm [None]
  - Amputation [None]
  - Gastrointestinal haemorrhage [None]
  - Haematemesis [None]
  - Peripheral vascular disorder [None]
  - Coagulopathy [None]

NARRATIVE: CASE EVENT DATE: 20200220
